FAERS Safety Report 5611364-5 (Version None)
Quarter: 2008Q1

REPORT INFORMATION
  Report Type: 
  Country: None (occurrence: None)
  Receive Date: 20080201
  Receipt Date: 20080121
  Transmission Date: 20080703
  Serious: Yes (Hospitalization, Other)
  Sender: FDA-Public Use
  Company Number: US-PFIZER INC-2008006396

PATIENT
  Sex: Female
  Weight: 88.636 kg

DRUGS (6)
  1. DILANTIN [Suspect]
     Indication: CONVULSION
  2. DILANTIN [Suspect]
  3. DILANTIN [Suspect]
     Indication: CONVULSION
  4. LIPITOR [Suspect]
     Indication: BLOOD CHOLESTEROL
  5. FOSAMAX [Concomitant]
  6. OPHTHALMOLOGICALS [Concomitant]

REACTIONS (7)
  - ANTICONVULSANT DRUG LEVEL DECREASED [None]
  - BLOOD CHOLESTEROL INCREASED [None]
  - CONVULSION [None]
  - MEDICAL DEVICE IMPLANTATION [None]
  - NEOPLASM [None]
  - PRURITUS [None]
  - RASH [None]
